FAERS Safety Report 13782471 (Version 4)
Quarter: 2017Q3

REPORT INFORMATION
  Report Type: Spontaneous
  Country: CH (occurrence: CH)
  Receive Date: 20170724
  Receipt Date: 20170807
  Transmission Date: 20171127
  Serious: Yes (Hospitalization)
  Sender: FDA-Public Use
  Company Number: CH-PFIZER INC-2017315272

PATIENT
  Age: 60 Year
  Sex: Male

DRUGS (10)
  1. TRIATEC [Suspect]
     Active Substance: RAMIPRIL
     Dosage: 5MG, 2X/DAY, WAS REDUCED TO HALF THE DOSE AFTER SYNCOPE OCCURRED
     Route: 048
  2. ASPIRIN CARDIO [Concomitant]
     Active Substance: ASPIRIN
     Dosage: 100MG, 1X/DAY (1-0-0-0)
  3. CRESTOR [Concomitant]
     Active Substance: ROSUVASTATIN CALCIUM
     Dosage: 20MG, 1X/DAY (0-0-1-0)
  4. AMIODARONE ZENTIVA [Concomitant]
     Active Substance: AMIODARONE HYDROCHLORIDE
     Dosage: 200MG, 1X/DAY (1-0-0-0)
  5. TRIATEC [Suspect]
     Active Substance: RAMIPRIL
     Dosage: 2.5 MG, 2X/DAY (1-0-1-0)
     Route: 048
  6. MAGNESIUM BIOMED /01486820/ [Concomitant]
     Dosage: 2.5 MMOL  0-0-1-0
  7. ALDACTONE [Suspect]
     Active Substance: SPIRONOLACTONE
     Dosage: 12.5MG, 1X/DAY, 25MG (0.5-0-0-0)
     Route: 065
  8. TOREM /01036501/ [Suspect]
     Active Substance: TORSEMIDE
     Dosage: 10MG, 1X/DAY (1-0-0-0)
     Route: 065
  9. BILOL [Suspect]
     Active Substance: BISOPROLOL
     Dosage: 5 MG, 2X/DAY
     Route: 065
  10. EFIENT [Concomitant]
     Active Substance: PRASUGREL HYDROCHLORIDE
     Dosage: 10MG, 1X/DAY (1-0-0-0)

REACTIONS (2)
  - Joint swelling [Unknown]
  - Syncope [Recovered/Resolved]

NARRATIVE: CASE EVENT DATE: 20170301
